FAERS Safety Report 7732819-3 (Version None)
Quarter: 2011Q3

REPORT INFORMATION
  Report Type: 
  Country: None (occurrence: None)
  Receive Date: 20110902
  Receipt Date: 20110902
  Transmission Date: 20111222
  Serious: Yes (Life-Threatening, Hospitalization, Disabling, Congenital Anomaly)
  Sender: FDA-Public Use
  Company Number: None

PATIENT
  Sex: Female
  Weight: 2 kg

DRUGS (1)
  1. TOPAMAX [Suspect]
     Indication: MIGRAINE
     Dosage: STARTED AT 25 MG INCREASED TO 100 DAILY ORALLY 047
     Route: 048
     Dates: start: 20051021, end: 20051130

REACTIONS (5)
  - MATERNAL DRUGS AFFECTING FOETUS [None]
  - CLEFT LIP AND PALATE [None]
  - CONGENITAL EYE DISORDER [None]
  - AORTIC VALVE DISEASE [None]
  - PREMATURE BABY [None]
